FAERS Safety Report 6930058-7 (Version None)
Quarter: 2010Q3

REPORT INFORMATION
  Report Type: 
  Country: None (occurrence: None)
  Receive Date: 20100818
  Receipt Date: 20100810
  Transmission Date: 20110219
  Serious: Yes (Death)
  Sender: FDA-Public Use
  Company Number: JP-GENZYME-THYM-1001758

PATIENT
  Age: 57 Year
  Weight: 73 kg

DRUGS (1)
  1. THYMOGLOBULIN [Suspect]
     Indication: BONE MARROW CONDITIONING REGIMEN
     Dosage: 1 MG/KG, QD
     Route: 042
     Dates: start: 20091010, end: 20091012

REACTIONS (1)
  - ACUTE RESPIRATORY DISTRESS SYNDROME [None]
